FAERS Safety Report 5468189-3 (Version None)
Quarter: 2007Q3

REPORT INFORMATION
  Report Type: 
  Country: None (occurrence: None)
  Receive Date: 20070926
  Receipt Date: 20070912
  Transmission Date: 20080115
  Serious: Yes (Other)
  Sender: FDA-Public Use
  Company Number: NO-ASTRAZENECA-2007SE05154

PATIENT
  Age: 70 Year
  Sex: Male

DRUGS (1)
  1. TENORMIN [Suspect]

REACTIONS (1)
  - CARDIAC FIBRILLATION [None]
